FAERS Safety Report 8273827-6 (Version None)
Quarter: 2012Q2

REPORT INFORMATION
  Report Type: 
  Country: None (occurrence: None)
  Receive Date: 20120406
  Receipt Date: 20120406
  Transmission Date: 20120825
  Serious: Yes (Other)
  Sender: FDA-Public Use
  Company Number: None

PATIENT
  Age: 57 Year
  Sex: Female
  Weight: 64.5 kg

DRUGS (6)
  1. RESTASIS [Concomitant]
  2. OMEGA 3 SUPPLEMENTS [Concomitant]
  3. XANAX [Concomitant]
  4. MULTI-VITAMINS [Concomitant]
  5. MEFLOQUINE HYDROCHLORIDE [Suspect]
     Indication: MALARIA PROPHYLAXIS
     Dosage: 250 MG ONE DOSE/WEEKLY ORAL
     Route: 048
     Dates: start: 20120207, end: 20120314
  6. LIPITOR [Concomitant]

REACTIONS (9)
  - FEELING JITTERY [None]
  - FEELING ABNORMAL [None]
  - INSOMNIA [None]
  - ANXIETY [None]
  - BLOOD PRESSURE SYSTOLIC INCREASED [None]
  - DISTURBANCE IN ATTENTION [None]
  - PARANOIA [None]
  - NERVOUSNESS [None]
  - DRUG HYPERSENSITIVITY [None]
